FAERS Safety Report 24788958 (Version 1)
Quarter: 2024Q4

REPORT INFORMATION
  Report Type: Report from Study
  Country: GB (occurrence: GB)
  Receive Date: 20241230
  Receipt Date: 20241230
  Transmission Date: 20250114
  Serious: Yes (Other)
  Sender: NOVARTIS
  Company Number: GB-002147023-NVSC2024GB244846

PATIENT
  Age: 9 Year
  Sex: Male

DRUGS (3)
  1. MEKINIST [Suspect]
     Active Substance: TRAMETINIB DIMETHYL SULFOXIDE
     Indication: Optic glioma
     Dosage: 1.0MG/0.5MG ON ALTERNATE DAYS
     Route: 048
     Dates: start: 20221007
  2. MEKINIST [Suspect]
     Active Substance: TRAMETINIB DIMETHYL SULFOXIDE
     Indication: Astrocytoma
     Dosage: 0.5 MG, QD
     Route: 048
  3. MEKINIST [Suspect]
     Active Substance: TRAMETINIB DIMETHYL SULFOXIDE
     Dosage: 1.0MG/0.5MG ON ALTERNATE DAYS
     Route: 048
     Dates: start: 20240712

REACTIONS (5)
  - Optic glioma [Unknown]
  - Malignant neoplasm progression [Unknown]
  - Cellulitis [Recovered/Resolved]
  - Cutaneous symptom [Unknown]
  - Incorrect dose administered [Unknown]

NARRATIVE: CASE EVENT DATE: 20230801
